FAERS Safety Report 5757239-2 (Version None)
Quarter: 2008Q2

REPORT INFORMATION
  Report Type: 
  Country: None (occurrence: None)
  Receive Date: 20080603
  Receipt Date: 20080526
  Transmission Date: 20081010
  Serious: Yes (Hospitalization)
  Sender: FDA-Public Use
  Company Number: DE-AMGEN-UK271094

PATIENT
  Sex: Male

DRUGS (8)
  1. PANITUMUMAB [Suspect]
     Indication: COLORECTAL CANCER
     Route: 042
     Dates: start: 20080115
  2. LEUCOVORIN CALCIUM [Suspect]
     Dates: start: 20080115
  3. FLUOROURACIL [Suspect]
     Dates: start: 20080115
  4. IRINOTECAN HCL [Suspect]
     Dates: start: 20080115
  5. ATROPIN [Concomitant]
     Route: 058
     Dates: start: 20080312, end: 20080312
  6. GRANISETRON HCL [Concomitant]
     Route: 042
     Dates: start: 20080312, end: 20080312
  7. DEXAMETASON [Concomitant]
     Route: 048
     Dates: start: 20080312, end: 20080313
  8. HEXACHLOROPHENE [Concomitant]
     Dates: start: 20080313, end: 20080313

REACTIONS (3)
  - ANAEMIA [None]
  - DIARRHOEA [None]
  - LEUKOPENIA [None]
